FAERS Safety Report 8524536-7 (Version None)
Quarter: 2012Q3

REPORT INFORMATION
  Report Type: 
  Country: None (occurrence: None)
  Receive Date: 20120720
  Receipt Date: 20120711
  Transmission Date: 20120928
  Serious: Yes (Hospitalization)
  Sender: FDA-Public Use
  Company Number: IT-JNJFOC-20120509688

PATIENT
  Sex: Male
  Weight: 118 kg

DRUGS (3)
  1. PALIPERIDONE PALMITATE [Suspect]
     Indication: SCHIZOPHRENIA
     Route: 030
     Dates: start: 20111110, end: 20120412
  2. CHLORDESMETHYLDIAZEPAM [Concomitant]
     Indication: ILL-DEFINED DISORDER
     Dates: start: 20120412
  3. BIPERIDEN HYDROCHLORIDE TAB [Concomitant]
     Indication: EXTRAPYRAMIDAL DISORDER
     Dates: start: 20110609

REACTIONS (1)
  - PSYCHOTIC DISORDER [None]
